FAERS Safety Report 9789031 (Version 1)
Quarter: 2013Q4

REPORT INFORMATION
  Report Type: Spontaneous
  Country: US (occurrence: US)
  Receive Date: 20131230
  Receipt Date: 20131230
  Transmission Date: 20140711
  Serious: No
  Sender: FDA-Public Use
  Company Number: US-ASTRAZENECA-2013SE83917

PATIENT
  Sex: Female

DRUGS (3)
  1. BRILINTA [Suspect]
     Indication: CORONARY ARTERY STENOSIS
     Dosage: LOADING DOSE OF 180 MG
     Route: 048
     Dates: start: 20131011, end: 20131011
  2. BRILINTA [Suspect]
     Indication: CORONARY ARTERY STENOSIS
     Route: 048
     Dates: start: 20131012, end: 20131026
  3. PLAVIX [Concomitant]

REACTIONS (2)
  - Activities of daily living impaired [Unknown]
  - Dyspnoea [Unknown]
